FAERS Safety Report 17614964 (Version 1)
Quarter: 2020Q2

REPORT INFORMATION
  Report Type: Spontaneous
  Country: DK (occurrence: DK)
  Receive Date: 20200402
  Receipt Date: 20200402
  Transmission Date: 20200713
  Serious: Yes (Hospitalization, Disabling)
  Sender: FDA-Public Use
  Company Number: DK-ASTRAZENECA-2020SE42674

PATIENT
  Age: 29 Year
  Sex: Male

DRUGS (6)
  1. QUETIAPINE. [Suspect]
     Active Substance: QUETIAPINE
     Indication: DEPRESSION
     Dosage: STRENGTH: UNKNOWN. DOSE: VARYING
     Route: 048
     Dates: start: 20130301, end: 2016
  2. QUETIAPINE. [Suspect]
     Active Substance: QUETIAPINE
     Indication: DEPRESSION
     Dosage: STRENGTH: UNKNOWN. DOSE: VARYING
     Route: 048
     Dates: start: 20130301, end: 2016
  3. RISPERDAL [Suspect]
     Active Substance: RISPERIDONE
     Indication: PSYCHOTIC DISORDER
     Dosage: STRENGHT: UNKNOWN. DOSE: UNKNOWN
     Route: 048
     Dates: start: 20160906, end: 201612
  4. TRUXAL [Concomitant]
     Active Substance: CHLORPROTHIXENE
     Indication: SEDATIVE THERAPY
     Dosage: STRENGTH: UNKNOWN. DOSE: UNKNOWN
     Route: 048
     Dates: start: 201302
  5. PHENERGAN [Concomitant]
     Active Substance: PROMETHAZINE HYDROCHLORIDE
     Indication: INSOMNIA
     Dosage: 25.0MG INTERMITTENT
     Route: 048
     Dates: start: 20130304
  6. RISPERDAL [Suspect]
     Active Substance: RISPERIDONE
     Indication: PSYCHOTIC DISORDER
     Dosage: STRENGHT: UNKNOWN. DOSE: UNKNOWN
     Route: 048
     Dates: start: 20130214

REACTIONS (8)
  - Body height decreased [Not Recovered/Not Resolved]
  - Lumbar vertebral fracture [Not Recovered/Not Resolved]
  - Blood prolactin increased [Recovered/Resolved]
  - Osteoporosis [Not Recovered/Not Resolved]
  - Foot fracture [Not Recovered/Not Resolved]
  - Lumbar vertebral fracture [Recovered/Resolved with Sequelae]
  - Bone density decreased [Not Recovered/Not Resolved]
  - Pain [Unknown]

NARRATIVE: CASE EVENT DATE: 20150111
